FAERS Safety Report 6902059-6 (Version None)
Quarter: 2010Q3

REPORT INFORMATION
  Report Type: 
  Country: None (occurrence: None)
  Receive Date: 20100803
  Receipt Date: 20080415
  Transmission Date: 20110219
  Serious: Yes (Other)
  Sender: FDA-Public Use
  Company Number: US-PFIZER INC-2008031327

PATIENT
  Sex: Female

DRUGS (8)
  1. LYRICA [Suspect]
     Indication: DIABETIC NEUROPATHY
     Dates: start: 20070201, end: 20080405
  2. LOTEMAX [Concomitant]
     Indication: BLINDNESS
  3. ALLEGRA [Concomitant]
     Indication: HYPERSENSITIVITY
  4. ACCUPRIL [Concomitant]
     Indication: DIABETIC NEPHROPATHY
  5. DIURETICS [Concomitant]
  6. TOPROL-XL [Concomitant]
  7. ZETIA [Concomitant]
  8. CYCLOSPORINE [Concomitant]
     Indication: DRY EYE

REACTIONS (26)
  - DRY EYE [None]
  - DRY SKIN [None]
  - DYSPNOEA [None]
  - ERYTHEMA [None]
  - FACIAL PAIN [None]
  - GASTROOESOPHAGEAL REFLUX DISEASE [None]
  - HEADACHE [None]
  - HYPERHIDROSIS [None]
  - HYPERSENSITIVITY [None]
  - HYPOAESTHESIA FACIAL [None]
  - INCREASED APPETITE [None]
  - JOINT SWELLING [None]
  - LIP PAIN [None]
  - NAUSEA [None]
  - NERVE INJURY [None]
  - NERVOUSNESS [None]
  - NEURALGIA [None]
  - ORAL PAIN [None]
  - PAIN [None]
  - PANIC REACTION [None]
  - PRURITUS [None]
  - SINUS DISORDER [None]
  - SINUSITIS [None]
  - SKIN BURNING SENSATION [None]
  - WEIGHT INCREASED [None]
  - WITHDRAWAL SYNDROME [None]
